FAERS Safety Report 8141957 (Version 3)
Quarter: 2012Q4

REPORT INFORMATION
  Report Type: 
  Country: CA (occurrence: CA)
  Receive Date: 20110919
  Receipt Date: 20121010
  Transmission Date: 20130627
  Serious: Yes (Other)
  Sender: FDA-Public Use
  Company Number: PHHY2011CA81868

PATIENT
  Sex: Male

DRUGS (2)
  1. ACLASTA [Suspect]
     Indication: OSTEOPOROSIS
     Dosage: UNK UKN, UNK
     Route: 042
     Dates: start: 20110818
  2. ADVIL [Concomitant]
     Dosage: UNK UKN, UNK

REACTIONS (9)
  - Speech disorder [Unknown]
  - Oropharyngeal pain [Recovering/Resolving]
  - Arthralgia [Unknown]
  - Pyrexia [Unknown]
  - Chills [Unknown]
  - Tremor [Unknown]
  - Oedema peripheral [Unknown]
  - Malaise [Unknown]
  - Influenza like illness [Unknown]
